FAERS Safety Report 6710773-0 (Version None)
Quarter: 2010Q2

REPORT INFORMATION
  Report Type: 
  Country: None (occurrence: None)
  Receive Date: 20100505
  Receipt Date: 20100423
  Transmission Date: 20101027
  Serious: Yes (Other)
  Sender: FDA-Public Use
  Company Number: US-BRISTOL-MYERS SQUIBB COMPANY-15086846

PATIENT
  Age: 56 Year
  Sex: Male
  Weight: 64 kg

DRUGS (18)
  1. CETUXIMAB [Suspect]
     Indication: NON-SMALL CELL LUNG CANCER
     Dosage: INTERRUPTED ON 16APR2010,91DAYS,INF:14TH
     Route: 042
     Dates: start: 20100114
  2. CARBOPLATIN [Suspect]
     Indication: NON-SMALL CELL LUNG CANCER
     Dosage: INTERRUPTED ON 08APR2010,83DAYS INF:5
     Route: 042
     Dates: start: 20100114
  3. PEMETREXED DISODIUM [Suspect]
     Indication: NON-SMALL CELL LUNG CANCER
     Dosage: INTERRUPTED ON 08APR2010,83DAYS INF:5
     Route: 042
     Dates: start: 20100114
  4. LEVOFLOXACIN [Concomitant]
     Dosage: 1 TABS PER DAY
     Route: 048
  5. BARIUM SULFATE [Concomitant]
     Dosage: 2HRS PRIOR TO EXAM(450MG/ML,TAK 450ML 3HR PRIOR TO EXAM)
     Route: 048
  6. MINOCYCLINE HCL [Concomitant]
     Route: 048
  7. HYDROMORPHONE HCL [Concomitant]
     Indication: PAIN
     Dosage: 8MG,TAK 1 TABS,4X/D
     Route: 048
  8. DEXAMETHASONE [Concomitant]
     Route: 048
  9. MELOXICAM [Concomitant]
     Dosage: 1TABS,DAILY W/MEALS FOR 2 WEEKS
     Route: 048
  10. PERCOCET [Concomitant]
     Indication: PAIN
     Dosage: 1DF:5MG/325MG(TAK 1 TAB EVERY 4-6 HR AS NEEDED)
     Route: 048
  11. BENZONATATE [Concomitant]
     Indication: COUGH
     Dosage: 100MG,TAK 1 TAB 3 TIME/D
     Route: 048
  12. PROCHLORPERAZINE MALEATE [Concomitant]
     Indication: NAUSEA
     Dosage: TAK 1 TABS
     Route: 048
  13. FOLIC ACID [Concomitant]
     Indication: SUPPLEMENTATION THERAPY
     Dosage: ROA IMPLANT
  14. TIOTROPIUM BROMIDE [Concomitant]
     Indication: CHRONIC OBSTRUCTIVE PULMONARY DISEASE
     Dosage: INHALE 1 CAP W/HANDIHALER ONCE DAILY
     Route: 055
  15. ALBUTEROL [Concomitant]
     Indication: CHRONIC OBSTRUCTIVE PULMONARY DISEASE
     Dosage: INHALE 1-2 PUFFS,4X/D
     Route: 055
  16. ZOMETA [Concomitant]
     Indication: METASTASES TO BONE
     Route: 042
     Dates: start: 20100408
  17. LEVAQUIN [Concomitant]
     Route: 048
     Dates: start: 20100416, end: 20100423
  18. NEUPOGEN [Concomitant]
     Indication: NEUTROPENIA
     Route: 058
     Dates: start: 20100416

REACTIONS (1)
  - DEPRESSION [None]
